FAERS Safety Report 15439789 (Version 1)
Quarter: 2018Q3

REPORT INFORMATION
  Report Type: Other
  Country: ES (occurrence: ES)
  Receive Date: 20180928
  Receipt Date: 20180928
  Transmission Date: 20181010
  Serious: Yes (Hospitalization, Other)
  Sender: FDA-Public Use
  Company Number: ES-APOTEX-2018AP021264

PATIENT
  Age: 55 Year
  Sex: Male

DRUGS (3)
  1. SINEMET PLUS [Interacting]
     Active Substance: CARBIDOPA\LEVODOPA
     Indication: PARKINSON^S DISEASE
     Dosage: 1 DF, TID EVERY 8 HOURS (1 CP THREE TIMES A DAY)
     Route: 048
     Dates: start: 20171222
  2. QUETIAPINE. [Interacting]
     Active Substance: QUETIAPINE
     Indication: PSYCHOTIC DISORDER
     Dosage: 25 MG, QD (25 MG ONCE A DAY)
     Route: 048
     Dates: start: 20171222, end: 20180106
  3. PRAMIPEXOLE. [Suspect]
     Active Substance: PRAMIPEXOLE
     Indication: PARKINSON^S DISEASE
     Dosage: 2.36 MG, QD (2.36 MG ONCE A DAY)
     Route: 048
     Dates: start: 201605, end: 20180109

REACTIONS (2)
  - Contraindicated drug prescribed [Recovered/Resolved]
  - Acute psychosis [Recovered/Resolved]

NARRATIVE: CASE EVENT DATE: 20171222
